FAERS Safety Report 8558829-4 (Version None)
Quarter: 2012Q3

REPORT INFORMATION
  Report Type: 
  Country: None (occurrence: None)
  Receive Date: 20120801
  Receipt Date: 20120724
  Transmission Date: 20120928
  Serious: Yes (Life-Threatening)
  Sender: FDA-Public Use
  Company Number: IT-TEVA-350027ISR

PATIENT
  Sex: Male

DRUGS (6)
  1. ALBUMINA UMANA [Concomitant]
  2. MS CONTIN [Concomitant]
     Dates: start: 20100529, end: 20120519
  3. CYCLOPHOSPHAMIDE [Concomitant]
  4. ACTIQ [Suspect]
     Indication: MUSCULOSKELETAL PAIN
     Dosage: 400 MICROGRAM;
     Route: 048
  5. ROCEPHIN [Concomitant]
     Indication: CYSTITIS
     Dates: start: 20120517, end: 20120519
  6. DEXAMETHASONE SODIUM PHOSPHATE [Concomitant]
     Dates: start: 20120412, end: 20120519

REACTIONS (2)
  - SOPOR [None]
  - LOSS OF CONSCIOUSNESS [None]
